FAERS Safety Report 9276731 (Version 1)
Quarter: 2013Q2

REPORT INFORMATION
  Report Type: Spontaneous
  Country: US (occurrence: US)
  Receive Date: 20130507
  Receipt Date: 20130507
  Transmission Date: 20140414
  Serious: Yes (Other)
  Sender: FDA-Public Use
  Company Number: US-ELI_LILLY_AND_COMPANY-US201305000265

PATIENT
  Age: 18 Year
  Sex: Female
  Weight: 69.39 kg

DRUGS (2)
  1. HUMALOG LISPRO [Suspect]
     Dosage: UNK, UNKNOWN
  2. HUMALOG LISPRO [Suspect]
     Dosage: 28 U, SINGLE

REACTIONS (4)
  - Blood glucose increased [Recovering/Resolving]
  - Ketoacidosis [Unknown]
  - Muscle spasms [Unknown]
  - Thirst [Unknown]
